FAERS Safety Report 9416105 (Version 3)
Quarter: 2013Q3

REPORT INFORMATION
  Report Type: Spontaneous
  Country: US (occurrence: None)
  Receive Date: 20130717
  Receipt Date: 20130828
  Transmission Date: 20140515
  Serious: Yes (Hospitalization)
  Sender: FDA-Public Use
  Company Number: 2013US001940

PATIENT
  Age: 62 Year
  Sex: Female
  Weight: 65 kg

DRUGS (16)
  1. ICLUSIG [Suspect]
     Indication: CHRONIC MYELOID LEUKAEMIA
     Route: 048
     Dates: start: 20130123
  2. SYNTHROID (LEVOTHYROXINE SODIUM) [Concomitant]
  3. LISINOPRIL (LISINOPRIL) [Concomitant]
  4. GLIPIZIDE (GLIPIZIDE) [Concomitant]
  5. JANUVIA (SITAGLIPTIN PHOSPHATE) [Concomitant]
  6. MIRTAZAPINE (MIRTAZAPINE) [Concomitant]
  7. SIMVASTATIN (SIMVASTATIN) [Concomitant]
  8. INSULIN (INSULIN) [Concomitant]
  9. DULCOLAX (BISACODYL) [Concomitant]
  10. HYDROCODONE (HYDROCODONE) [Concomitant]
  11. TEMAZEPAM (TEMAZEPAM) [Concomitant]
  12. DOXEPIN (DOXEPIN) [Concomitant]
  13. COENZYME Q10 (COENZYME Q10) [Concomitant]
  14. FISH OIL (FISH OIL) [Concomitant]
  15. STOOL SOFTENER (DOCUSATE SODIUM) [Concomitant]
  16. PERCOCET [Concomitant]

REACTIONS (7)
  - Thyroidectomy [None]
  - Parathyroid gland operation [None]
  - Alopecia [None]
  - Constipation [None]
  - Joint stiffness [None]
  - Dry skin [None]
  - Hypercalcaemia [None]
